FAERS Safety Report 19456606 (Version 1)
Quarter: 2021Q2

REPORT INFORMATION
  Report Type: Spontaneous
  Country: US (occurrence: US)
  Receive Date: 20210624
  Receipt Date: 20210624
  Transmission Date: 20210717
  Serious: Yes (Other)
  Sender: FDA-Public Use
  Company Number: None

PATIENT
  Age: 43 Year
  Sex: Female
  Weight: 73 kg

DRUGS (10)
  1. ALBUTEROL. [Concomitant]
     Active Substance: ALBUTEROL
  2. SYMBICORT 160 [Concomitant]
  3. CELECOXIB. [Concomitant]
     Active Substance: CELECOXIB
  4. TIOTROPIUM [Concomitant]
     Active Substance: TIOTROPIUM
  5. DUPIXENT [Suspect]
     Active Substance: DUPILUMAB
     Indication: ASTHMA
     Dosage: ?          OTHER FREQUENCY:Q2WEEKS;?
     Route: 058
  6. SYNTHROID [Concomitant]
     Active Substance: LEVOTHYROXINE SODIUM
  7. MONTELUKAST [Concomitant]
     Active Substance: MONTELUKAST SODIUM
  8. OLOPATADINE OPTH [Concomitant]
  9. DUPIXENT [Suspect]
     Active Substance: DUPILUMAB
     Indication: NASAL POLYPS
     Dosage: ?          OTHER FREQUENCY:Q2WEEKS;?
     Route: 058
  10. INSULINS [Concomitant]

REACTIONS (9)
  - Eye disorder [None]
  - Face oedema [None]
  - Fatigue [None]
  - Abdominal pain upper [None]
  - Dyspepsia [None]
  - Paraesthesia [None]
  - Treatment failure [None]
  - Condition aggravated [None]
  - Polyp [None]
